FAERS Safety Report 9470056 (Version 1)
Quarter: 2013Q3

REPORT INFORMATION
  Report Type: Spontaneous
  Country: US (occurrence: None)
  Receive Date: 20130820
  Receipt Date: 20130820
  Transmission Date: 20140515
  Serious: Yes (Other)
  Sender: FDA-Public Use
  Company Number: None

PATIENT
  Age: 53 Year
  Sex: Female

DRUGS (7)
  1. TECFIDERA [Suspect]
     Dosage: 120 MG X 7 DAYS THEN 240 MG, BID, ORAL
     Route: 048
  2. XANAX [Concomitant]
  3. PERCOCET [Concomitant]
  4. PRILOSEC [Concomitant]
  5. LEVOTHYROXINE [Concomitant]
  6. LYRICA [Concomitant]
  7. TIZANIDINE [Concomitant]

REACTIONS (4)
  - Nausea [None]
  - Vomiting [None]
  - Diarrhoea [None]
  - Pain [None]
